FAERS Safety Report 12665180 (Version 8)
Quarter: 2016Q4

REPORT INFORMATION
  Report Type: Report from Study
  Country: CA (occurrence: CA)
  Receive Date: 20160818
  Receipt Date: 20161103
  Transmission Date: 20170207
  Serious: Yes (Other)
  Sender: FDA-Public Use
  Company Number: PHHY2016CA106693

PATIENT
  Age: 50 Year
  Sex: Female

DRUGS (1)
  1. GILENYA [Suspect]
     Active Substance: FINGOLIMOD HYDROCHLORIDE
     Indication: PRODUCT USED FOR UNKNOWN INDICATION
     Dosage: UNK
     Route: 048
     Dates: start: 20160801

REACTIONS (20)
  - Visual acuity reduced [Unknown]
  - Visual impairment [Unknown]
  - Chills [Recovered/Resolved]
  - Wound [Unknown]
  - Limb injury [Unknown]
  - Headache [Unknown]
  - Conjunctivitis [Unknown]
  - Multiple sclerosis relapse [Unknown]
  - Influenza like illness [Unknown]
  - Localised infection [Unknown]
  - Intraocular pressure increased [Unknown]
  - Erythema [Unknown]
  - Optic neuritis [Unknown]
  - Decreased appetite [Unknown]
  - Vomiting [Unknown]
  - Papilloedema [Unknown]
  - Vision blurred [Unknown]
  - Eye pruritus [Unknown]
  - Chills [Unknown]
  - Feeling hot [Unknown]

NARRATIVE: CASE EVENT DATE: 20160801
